FAERS Safety Report 8023048-7 (Version None)
Quarter: 2012Q1

REPORT INFORMATION
  Report Type: 
  Country: None (occurrence: None)
  Receive Date: 20120104
  Receipt Date: 20111228
  Transmission Date: 20120608
  Serious: Yes (Life-Threatening, Other)
  Sender: FDA-Public Use
  Company Number: FR-PFIZER INC-2012001235

PATIENT
  Age: 60 Year
  Sex: Female

DRUGS (5)
  1. CEFPODOXIME PROXETIL [Suspect]
     Indication: TRACHEITIS
     Dosage: UNK
     Route: 048
     Dates: start: 20110907, end: 20110910
  2. ENALAPRIL MALEATE/LERCANIDIPINE HYDROCHLORIDE [Concomitant]
     Dosage: UNK
  3. ROSUVASTATIN CALCIUM [Concomitant]
     Dosage: UNK
  4. LEVOTHYROXINE SODIUM [Concomitant]
     Dosage: UNK
  5. ASPIRIN [Concomitant]
     Dosage: UNK

REACTIONS (2)
  - FEBRILE BONE MARROW APLASIA [None]
  - SEPTIC SHOCK [None]
